FAERS Safety Report 6474757-2 (Version None)
Quarter: 2009Q4

REPORT INFORMATION
  Report Type: 
  Country: None (occurrence: None)
  Receive Date: 20091204
  Receipt Date: 20090713
  Transmission Date: 20100525
  Serious: Yes (Other)
  Sender: FDA-Public Use
  Company Number: US-ELI_LILLY_AND_COMPANY-US200902001737

PATIENT
  Sex: Male
  Weight: 105.22 kg

DRUGS (7)
  1. BYETTA [Suspect]
     Indication: TYPE 2 DIABETES MELLITUS
     Dosage: 5 UG, 2/D
     Route: 058
     Dates: start: 20081215, end: 20090114
  2. BYETTA [Suspect]
     Dosage: 10 UG, 2/D
     Route: 058
     Dates: start: 20090114, end: 20090129
  3. GLIPIZIDE [Concomitant]
     Indication: DIABETES MELLITUS
     Dosage: 2.5 MG, EACH MORNING
     Dates: start: 20080902, end: 20081201
  4. GLIPIZIDE [Concomitant]
     Dosage: 5 MG, EACH EVENING
     Dates: start: 20080902, end: 20081201
  5. ZOCOR [Concomitant]
     Dosage: 20 MG, EACH EVENING
     Dates: start: 20080902
  6. ASPIRIN [Concomitant]
     Dosage: 325 MG, UNK
     Dates: start: 20010401, end: 20090129
  7. ASPIRIN [Concomitant]
     Dosage: 325 MG, UNK
     Dates: start: 20090310

REACTIONS (1)
  - PANCREATITIS [None]
